FAERS Safety Report 7585745-7 (Version None)
Quarter: 2011Q3

REPORT INFORMATION
  Report Type: 
  Country: None (occurrence: None)
  Receive Date: 20110701
  Receipt Date: 20110624
  Transmission Date: 20111222
  Serious: Yes (Hospitalization)
  Sender: FDA-Public Use
  Company Number: DE-SANOFI-AVENTIS-2010SA010893

PATIENT
  Age: 56 Year
  Sex: Male
  Weight: 119 kg

DRUGS (15)
  1. NOVALGIN [Concomitant]
     Dates: start: 20091230, end: 20100104
  2. ALL OTHER THERAPEUTIC PRODUCTS [Concomitant]
     Dates: start: 20091230
  3. IBUPROFEN [Concomitant]
     Dates: start: 20100125, end: 20100125
  4. LEUCOVORIN CALCIUM [Suspect]
     Route: 042
     Dates: start: 20100208, end: 20100208
  5. KETOPROFEN [Concomitant]
  6. ANEMET [Concomitant]
     Dates: start: 20100111, end: 20100125
  7. AFLIBERCEPT [Suspect]
     Route: 042
     Dates: start: 20100208, end: 20100208
  8. OXALIPLATIN [Suspect]
     Route: 042
     Dates: start: 20100111, end: 20100111
  9. FLUOROURACIL [Suspect]
     Route: 042
     Dates: start: 20100208, end: 20100208
  10. EBRANTIL [Concomitant]
     Dates: start: 20100125, end: 20100125
  11. CANDESARTAN CILEXETIL [Concomitant]
  12. DEXAMETHASONE [Concomitant]
     Dates: start: 20100111, end: 20100125
  13. AFLIBERCEPT [Suspect]
     Route: 042
     Dates: start: 20100111, end: 20100111
  14. NITROGLYCERIN [Concomitant]
     Dates: start: 20100125, end: 20100125
  15. OXALIPLATIN [Suspect]
     Route: 042
     Dates: start: 20100208, end: 20100208

REACTIONS (1)
  - VENTRICULAR ARRHYTHMIA [None]
